FAERS Safety Report 14020251 (Version 2)
Quarter: 2017Q3

REPORT INFORMATION
  Report Type: Spontaneous
  Country: US (occurrence: US)
  Receive Date: 20170928
  Receipt Date: 20170928
  Transmission Date: 20171128
  Serious: Yes (Other)
  Sender: FDA-Public Use
  Company Number: US-BAYER-2017-182340

PATIENT
  Age: 63 Year
  Sex: Female

DRUGS (3)
  1. CLIMARA PRO [Suspect]
     Active Substance: ESTRADIOL\LEVONORGESTREL
     Indication: WEIGHT DECREASED
  2. CLIMARA PRO [Suspect]
     Active Substance: ESTRADIOL\LEVONORGESTREL
     Indication: SLEEP DISORDER
     Dosage: UNK
     Route: 062
  3. CLIMARA PRO [Suspect]
     Active Substance: ESTRADIOL\LEVONORGESTREL
     Indication: APPETITE DISORDER

REACTIONS (4)
  - Bone density decreased [None]
  - Uterine haemorrhage [None]
  - Product use in unapproved indication [None]
  - Product physical issue [None]
